FAERS Safety Report 23318824 (Version 1)
Quarter: 2023Q4

REPORT INFORMATION
  Report Type: Spontaneous
  Country: US (occurrence: US)
  Receive Date: 20231220
  Receipt Date: 20231220
  Transmission Date: 20240110
  Serious: No
  Sender: FDA-Public Use
  Company Number: US-ABBVIE-2308968US

PATIENT
  Sex: Female

DRUGS (2)
  1. BOTOX [Suspect]
     Active Substance: ONABOTULINUMTOXINA
     Indication: Facial asymmetry
     Dosage: TIME INTERVAL: AS NECESSARY: DOSE DESC: UNK UNK, SINGLE
  2. JUVEDERM ULTRA [Concomitant]
     Active Substance: HYALURONIC ACID

REACTIONS (1)
  - Off label use [Unknown]
